FAERS Safety Report 13839468 (Version 1)
Quarter: 2017Q3

REPORT INFORMATION
  Report Type: Spontaneous
  Country: US (occurrence: US)
  Receive Date: 20170805
  Receipt Date: 20170805
  Transmission Date: 20171127
  Serious: No
  Sender: FDA-Public Use
  Company Number: None

PATIENT
  Age: 30 Year
  Sex: Male

DRUGS (16)
  1. CALCIUM ACETATE. [Concomitant]
     Active Substance: CALCIUM ACETATE
  2. CLONAZEPAM. [Concomitant]
     Active Substance: CLONAZEPAM
  3. OXYCODONE [Concomitant]
     Active Substance: OXYCODONE
  4. GABAPENTIN. [Concomitant]
     Active Substance: GABAPENTIN
  5. URSODIAL [Concomitant]
  6. INSULIN [Suspect]
     Active Substance: INSULIN NOS
     Indication: HYPERGLYCAEMIA
     Dosage: 10 UNITS + 2 UNITS UNKNOWN SC
     Route: 058
     Dates: start: 20170201
  7. CYCLOBENZAPRINE. [Concomitant]
     Active Substance: CYCLOBENZAPRINE
  8. TEMAZEPAM. [Concomitant]
     Active Substance: TEMAZEPAM
  9. VORICONAZOLE. [Concomitant]
     Active Substance: VORICONAZOLE
  10. CARVEDILOL. [Concomitant]
     Active Substance: CARVEDILOL
  11. DRONABINOL. [Concomitant]
     Active Substance: DRONABINOL
  12. PHYTONADIONE. [Concomitant]
     Active Substance: PHYTONADIONE
  13. CHOLECALCIFEROL [Concomitant]
     Active Substance: CHOLECALCIFEROL
  14. PANCREALIPASE [Concomitant]
     Active Substance: PANCRELIPASE
  15. FUROSEMIDE. [Concomitant]
     Active Substance: FUROSEMIDE
  16. MONTELUKAST [Concomitant]
     Active Substance: MONTELUKAST SODIUM

REACTIONS (4)
  - Hypoglycaemia [None]
  - Pulseless electrical activity [None]
  - Diabetes mellitus inadequate control [None]
  - Cardiac arrest [None]

NARRATIVE: CASE EVENT DATE: 20170502
